FAERS Safety Report 10083609 (Version 1)
Quarter: 2014Q2

REPORT INFORMATION
  Report Type: Spontaneous
  Country: GB (occurrence: GB)
  Receive Date: 20140417
  Receipt Date: 20140417
  Transmission Date: 20141212
  Serious: Yes (Life-Threatening, Hospitalization, Other)
  Sender: FDA-Public Use
  Company Number: GB-TEVA-474377ISR

PATIENT
  Age: 23 Year
  Sex: Male
  Weight: 120 kg

DRUGS (2)
  1. CITALOPRAM [Suspect]
     Indication: DEPRESSION
     Route: 048
     Dates: start: 20120312, end: 20120319
  2. TRAMADOL [Interacting]
     Dates: start: 20120312, end: 20120319

REACTIONS (8)
  - Abdominal pain [Recovered/Resolved]
  - Hallucination, auditory [Recovered/Resolved]
  - Dyspnoea [Recovered/Resolved]
  - Mental disorder [Recovered/Resolved]
  - Unresponsive to stimuli [Recovered/Resolved]
  - Coma [Recovered/Resolved]
  - Serotonin syndrome [Recovered/Resolved]
  - Drug interaction [Unknown]
